FAERS Safety Report 8565821-2 (Version None)
Quarter: 2012Q3

REPORT INFORMATION
  Report Type: 
  Country: None (occurrence: None)
  Receive Date: 20120724
  Receipt Date: 20120711
  Transmission Date: 20120928
  Serious: Yes (Life-Threatening, Other)
  Sender: FDA-Public Use
  Company Number: 2012P1050560

PATIENT
  Age: 50 Year
  Sex: Female

DRUGS (1)
  1. HEPARIN [Suspect]
     Indication: RENAL TRANSPLANT
     Dosage: 80 UNITS/KG; X1; IVBOL 18 UNITS/KG;QH;IV
     Route: 042

REACTIONS (5)
  - PULMONARY EMBOLISM [None]
  - DEEP VEIN THROMBOSIS [None]
  - RENAL INFARCT [None]
  - HEPARIN-INDUCED THROMBOCYTOPENIA [None]
  - RENAL ARTERY THROMBOSIS [None]
